FAERS Safety Report 18157913 (Version 4)
Quarter: 2020Q3

REPORT INFORMATION
  Report Type: Spontaneous
  Country: RO (occurrence: RO)
  Receive Date: 20200817
  Receipt Date: 20200923
  Transmission Date: 20201103
  Serious: Yes (Death, Hospitalization, Other)
  Sender: FDA-Public Use
  Company Number: RO-PFIZER INC-2020315087

PATIENT
  Age: 68 Year
  Sex: Female

DRUGS (2)
  1. EPIRUBICIN HCL [Suspect]
     Active Substance: EPIRUBICIN HYDROCHLORIDE
     Indication: BREAST CANCER STAGE III
     Dosage: 100 MG/M2, CYCLIC (SECOND CYCLE)
  2. CYCLOPHOSPHAMIDE. [Suspect]
     Active Substance: CYCLOPHOSPHAMIDE
     Dosage: 600 MG/M2, CYCLIC (SECOND CYCLE)

REACTIONS (3)
  - Immunosuppression [Unknown]
  - Pancreatitis acute [Fatal]
  - Clostridium difficile infection [Unknown]
